FAERS Safety Report 4330184-5 (Version None)
Quarter: 2004Q1

REPORT INFORMATION
  Report Type: 
  Country: None (occurrence: None)
  Receive Date: 20040329
  Receipt Date: 20040316
  Transmission Date: 20041129
  Serious: No
  Sender: FDA-Public Use
  Company Number: 04P-028-0254034-00

PATIENT
  Age: 45 Year
  Sex: Male
  Weight: 65 kg

DRUGS (8)
  1. KALETRA [Suspect]
     Indication: HIV INFECTION
     Dosage: 3 CAPSULE, 2 IN 1 D, PER ORAL
     Route: 048
     Dates: start: 20040226, end: 20040311
  2. OXYCOCET [Concomitant]
  3. OXYCODONE HCL [Concomitant]
  4. BACTRIM [Concomitant]
  5. VALPROATE SEMISODIUM [Concomitant]
  6. LORAZEPAM [Concomitant]
  7. AMITRIPTYLINE HCL [Concomitant]
  8. LAMIVUDINE [Concomitant]

REACTIONS (7)
  - ERYTHEMA MULTIFORME [None]
  - HAEMORRHAGE [None]
  - HEADACHE [None]
  - MALAISE [None]
  - PAIN [None]
  - PRURITUS [None]
  - RASH PUSTULAR [None]
